FAERS Safety Report 8263233-2 (Version None)
Quarter: 2012Q1

REPORT INFORMATION
  Report Type: 
  Country: None (occurrence: None)
  Receive Date: 20120327
  Receipt Date: 20110502
  Transmission Date: 20120608
  Serious: Yes (Other)
  Sender: FDA-Public Use
  Company Number: PHHY2011US37381

PATIENT
  Sex: Female
  Weight: 83.9 kg

DRUGS (10)
  1. PULMICORT [Concomitant]
  2. SUPER B (AMINO ACIDS NOS, MINERALS NOS, VITAMINS NOS) [Concomitant]
  3. GLEEVEC [Suspect]
     Dosage: 100 MG, QD, ORAL
     Route: 048
  4. PREMARIN [Concomitant]
  5. IBUPROFEN [Concomitant]
  6. FISH OIL (FISH OIL) [Concomitant]
  7. CALTRATE +D (CALCIUM CARBONATE, VITAMIN D NOS) [Concomitant]
  8. MULTI-VIT (VITAMINS NOS) [Concomitant]
  9. ASPIRIN [Concomitant]
  10. ACETAMINOPHEN [Concomitant]

REACTIONS (3)
  - FATIGUE [None]
  - PLATELET COUNT DECREASED [None]
  - CELLULITIS [None]
